FAERS Safety Report 19315561 (Version 3)
Quarter: 2021Q3

REPORT INFORMATION
  Report Type: Spontaneous
  Country: DE (occurrence: FI)
  Receive Date: 20210527
  Receipt Date: 20210824
  Transmission Date: 20211014
  Serious: Yes (Hospitalization, Other)
  Sender: FDA-Public Use
  Company Number: FI-ENDO PHARMACEUTICALS INC-2021-007796

PATIENT
  Age: 46 Year
  Sex: Male
  Weight: 107 kg

DRUGS (9)
  1. SILDENAFIL. [Concomitant]
     Active Substance: SILDENAFIL
     Indication: ERECTILE DYSFUNCTION
     Dosage: UNK UNKNOWN, UNKNOWN
     Route: 065
  2. AVEED [Suspect]
     Active Substance: TESTOSTERONE UNDECANOATE
     Dosage: UNKNOWN, 2ND INJECTION
     Route: 065
     Dates: start: 200902
  3. AVEED [Suspect]
     Active Substance: TESTOSTERONE UNDECANOATE
     Dosage: UNKNOWN, 10?11 WEEK INTERVAL
     Route: 065
     Dates: start: 201804, end: 201907
  4. AVEED [Suspect]
     Active Substance: TESTOSTERONE UNDECANOATE
     Dosage: UNKNOWN, 3RD INJECTION
     Route: 065
     Dates: start: 200905
  5. AVEED [Suspect]
     Active Substance: TESTOSTERONE UNDECANOATE
     Dosage: 1 DF, ONCE
     Route: 065
     Dates: start: 2017
  6. AVEED [Suspect]
     Active Substance: TESTOSTERONE UNDECANOATE
     Indication: PRODUCT USED FOR UNKNOWN INDICATION
     Dosage: UNKNOWN, 1ST INJECTION
     Route: 065
     Dates: start: 200901
  7. AVEED [Suspect]
     Active Substance: TESTOSTERONE UNDECANOATE
     Dosage: UNKNOWN, 6?8 WEEK INTERVAL
     Route: 065
     Dates: start: 201909
  8. XATRAL                             /00975302/ [Concomitant]
     Active Substance: ALFUZOSIN HYDROCHLORIDE
     Indication: PRODUCT USED FOR UNKNOWN INDICATION
     Dosage: UNK UNKNOWN, UNKNOWN
     Route: 065
  9. TESTOSTERONE. [Concomitant]
     Active Substance: TESTOSTERONE
     Indication: PRODUCT USED FOR UNKNOWN INDICATION
     Dosage: UNK UNKNOWN, UNKNOWN
     Route: 065
     Dates: start: 201908

REACTIONS (13)
  - Calculus urinary [Recovered/Resolved]
  - Therapeutic response unexpected [Unknown]
  - Urine odour abnormal [Recovering/Resolving]
  - Urinary tract disorder [Unknown]
  - Hyperhidrosis [Unknown]
  - Wrong technique in product usage process [Unknown]
  - Product prescribing issue [Unknown]
  - Urinary retention [Not Recovered/Not Resolved]
  - Weight decreased [Unknown]
  - Therapeutic response shortened [Unknown]
  - Increased appetite [Unknown]
  - Blood triglycerides increased [Unknown]
  - Off label use [Unknown]

NARRATIVE: CASE EVENT DATE: 2009
